FAERS Safety Report 17555487 (Version 2)
Quarter: 2020Q1

REPORT INFORMATION
  Report Type: Spontaneous
  Country: US (occurrence: US)
  Receive Date: 20200318
  Receipt Date: 20200327
  Transmission Date: 20200409
  Serious: Yes (Hospitalization, Congenital Anomaly, Other)
  Sender: FDA-Public Use
  Company Number: US-APOTEX-2020AP008894

PATIENT
  Sex: Male

DRUGS (1)
  1. PAROXETINE. [Suspect]
     Active Substance: PAROXETINE
     Indication: PRODUCT USED FOR UNKNOWN INDICATION
     Dosage: UNK
     Route: 064

REACTIONS (50)
  - Hypoglycaemia neonatal [Unknown]
  - Livedo reticularis [Unknown]
  - Alopecia [Unknown]
  - Status epilepticus [Recovering/Resolving]
  - Craniofacial deformity [Unknown]
  - Eye movement disorder [Unknown]
  - Skin hypertrophy [Unknown]
  - Hypotonia [Unknown]
  - Congenital central nervous system anomaly [Unknown]
  - Nonreassuring foetal heart rate pattern [Unknown]
  - Hyperinsulinism [Unknown]
  - Primary hypogonadism [Unknown]
  - Gait disturbance [Unknown]
  - Cyanosis [Unknown]
  - Partial seizures [Recovering/Resolving]
  - Cholangitis chronic [Unknown]
  - Polycythaemia [Unknown]
  - Seizure [Recovering/Resolving]
  - Hypogammaglobulinaemia [Recovering/Resolving]
  - Finger deformity [Unknown]
  - Trichorrhexis [Unknown]
  - Head deformity [Unknown]
  - Foetal exposure during pregnancy [Unknown]
  - Blood luteinising hormone increased [Unknown]
  - Muscle twitching [Unknown]
  - Trichothiodystrophy [Unknown]
  - Duodenal stenosis [Unknown]
  - Drooling [Unknown]
  - Biopsy liver abnormal [Unknown]
  - Weight decreased [Recovering/Resolving]
  - Hair disorder [Unknown]
  - Anaemia macrocytic [Unknown]
  - Cryptorchism [Unknown]
  - Biloma [Unknown]
  - Foetal hypokinesia [Unknown]
  - Cortical visual impairment [Unknown]
  - Pancytopenia [Unknown]
  - Transaminases increased [Unknown]
  - Blood prolactin increased [Unknown]
  - Blood follicle stimulating hormone increased [Unknown]
  - Neonatal respiratory distress [Unknown]
  - Syndactyly [Unknown]
  - Cholecystitis acute [Unknown]
  - Bradycardia foetal [Unknown]
  - Depressed level of consciousness [Unknown]
  - Developmental delay [Unknown]
  - Blood testosterone decreased [Unknown]
  - Infection [Unknown]
  - Tremor [Unknown]
  - Dry skin [Unknown]
